FAERS Safety Report 18932384 (Version 1)
Quarter: 2021Q1

REPORT INFORMATION
  Report Type: Spontaneous
  Country: FR (occurrence: FR)
  Receive Date: 20210224
  Receipt Date: 20210224
  Transmission Date: 20210420
  Serious: Yes (Hospitalization)
  Sender: FDA-Public Use
  Company Number: FR-SUN PHARMACEUTICAL INDUSTRIES LTD-2021RR-282703

PATIENT
  Age: 93 Year
  Sex: Female
  Weight: 57 kg

DRUGS (2)
  1. AUGMENTIN [Suspect]
     Active Substance: AMOXICILLIN\CLAVULANATE POTASSIUM
     Indication: INFECTED SKIN ULCER
     Dosage: 3 GRAM, DAILY
     Route: 048
     Dates: start: 20201222, end: 20210105
  2. CIPROFLOXACIN. [Suspect]
     Active Substance: CIPROFLOXACIN
     Indication: INFECTED SKIN ULCER
     Dosage: 1000 MILLIGRAM, DAILY
     Route: 048
     Dates: start: 20201222, end: 20210105

REACTIONS (4)
  - Hepatocellular injury [Recovering/Resolving]
  - Nausea [Recovered/Resolved]
  - Cholestasis [Recovering/Resolving]
  - Vomiting [Recovered/Resolved]

NARRATIVE: CASE EVENT DATE: 20201222
